FAERS Safety Report 20880093 (Version 1)
Quarter: 2022Q2

REPORT INFORMATION
  Report Type: Spontaneous
  Country: CA (occurrence: CA)
  Receive Date: 20220526
  Receipt Date: 20220526
  Transmission Date: 20220720
  Serious: Yes (Hospitalization)
  Sender: FDA-Public Use
  Company Number: CA-BAYER-2022A073898

PATIENT
  Age: 84 Year
  Sex: Male
  Weight: 83 kg

DRUGS (2)
  1. CIPROFLOXACIN [Suspect]
     Active Substance: CIPROFLOXACIN
     Indication: Infection
     Route: 048
  2. ERTAPENEM [Concomitant]
     Active Substance: ERTAPENEM

REACTIONS (6)
  - Limb injury [Recovered/Resolved]
  - Fall [Recovered/Resolved]
  - Incision site discharge [Recovered/Resolved]
  - Amputation [Recovered/Resolved]
  - Incision site complication [Recovered/Resolved]
  - Postoperative wound complication [Recovered/Resolved]
